FAERS Safety Report 7077074-5 (Version None)
Quarter: 2010Q4

REPORT INFORMATION
  Report Type: 
  Country: None (occurrence: None)
  Receive Date: 20101101
  Receipt Date: 20101027
  Transmission Date: 20110411
  Serious: Yes (Death, Congenital Anomaly, Other)
  Sender: FDA-Public Use
  Company Number: TR-NOVOPROD-316282

PATIENT
  Sex: Female
  Weight: 3.6 kg

DRUGS (2)
  1. NOVORAPID FLEXPEN [Suspect]
     Indication: DRUG EXPOSURE DURING PREGNANCY
     Dosage: 62 U, QD
     Route: 058
     Dates: start: 20100126, end: 20100913
  2. INSULATARD HM PENFILL [Suspect]
     Indication: DRUG EXPOSURE DURING PREGNANCY
     Dosage: 34 U, QD
     Route: 058
     Dates: start: 20100126, end: 20100913

REACTIONS (3)
  - CONGENITAL CARDIOVASCULAR ANOMALY [None]
  - DRUG EXPOSURE DURING PREGNANCY [None]
  - LUNG INFECTION [None]
